FAERS Safety Report 15493444 (Version 1)
Quarter: 2018Q4

REPORT INFORMATION
  Report Type: Spontaneous
  Country: DK (occurrence: DK)
  Receive Date: 20181012
  Receipt Date: 20181012
  Transmission Date: 20190205
  Serious: Yes (Hospitalization, Disabling)
  Sender: FDA-Public Use
  Company Number: DK-009507513-1810DNK003997

PATIENT
  Age: 74 Year
  Sex: Female

DRUGS (14)
  1. SEEBRI BREEZHALER [Concomitant]
     Active Substance: GLYCOPYRROLATE
     Indication: CHRONIC OBSTRUCTIVE PULMONARY DISEASE
     Dosage: 44 MICROGRAM, QD ; STRENGTH: 44 MICROGRAMS
     Route: 055
     Dates: start: 20150807
  2. KALEORID [Concomitant]
     Active Substance: POTASSIUM CHLORIDE
     Indication: HYPOKALAEMIA
     Dosage: 1500 MG, QD ; STRENGTH: 750 MILLIGRAMS.
     Route: 048
     Dates: start: 2014
  3. ANCOZAN [Concomitant]
     Active Substance: LOSARTAN POTASSIUM
     Indication: HYPERTENSION
     Dosage: 50 MG, QD ; STRENGTH: 50 MILLIGRAMS
     Route: 048
     Dates: start: 20180821
  4. ACETAMINOPHEN. [Concomitant]
     Active Substance: ACETAMINOPHEN
     Indication: PAIN
     Dosage: 3000 MG, QD ; STRENGTH: 500 MILLIGRAMS.
     Route: 048
     Dates: start: 20180824
  5. UNIKALK BASIC [Concomitant]
     Indication: OSTEOPOROSIS
     Dosage: DOSAGE: 1 TABLET IN THE MORNING AND IN THE EVENING. STRENGTH: UNKNOWN.
     Route: 048
     Dates: start: 20171006
  6. DONEPEZIL. [Concomitant]
     Active Substance: DONEPEZIL
     Indication: PARKINSON^S DISEASE
     Dosage: 10 MG, QD ; STRENGTH: 10 MILLIGRAMS
     Route: 048
     Dates: start: 201604
  7. INNOVAIR [Concomitant]
     Active Substance: BECLOMETHASONE DIPROPIONATE\FORMOTEROL
     Indication: CHRONIC OBSTRUCTIVE PULMONARY DISEASE
     Dosage: 4 DF, QD ; STRENGTH: 100 + 6 6 MICROGRAMS/DOSAGE ; PRESSURISED INHALATION, SOLUTION
     Route: 055
     Dates: start: 20141203
  8. ESCITALOPRAM TEVA [Concomitant]
     Active Substance: ESCITALOPRAM OXALATE
     Indication: ANXIETY
     Dosage: 10 MG, QD ; STRENGTH: 10 MILLIGRAMS
     Route: 048
     Dates: start: 20171006
  9. VITAMINS (UNSPECIFIED) [Concomitant]
     Active Substance: VITAMINS
     Indication: VITAMIN SUPPLEMENTATION
     Dosage: DOSAGE: 1 TABLET IN THE MORNING AND IN THE EVENING. STRENGTH: UNKNOWN.
     Route: 048
     Dates: start: 2017
  10. ALENDRONATE SODIUM. [Suspect]
     Active Substance: ALENDRONATE SODIUM
     Indication: OSTEOPOROSIS
     Dosage: 70 MG, QW ; STRENGTH: 70 MILLIGRAMS
     Route: 048
     Dates: start: 20140422
  11. VENTOLINE (ALBUTEROL SULFATE) [Concomitant]
     Active Substance: ALBUTEROL SULFATE
     Indication: BRONCHOSPASM
     Dosage: DOSAGE: DOSAGE FOLLOWING THE PRESCRIPTION. STRENGTH: 0.1 MILLIGRAMS/DOSAGE
     Route: 055
     Dates: start: 2014
  12. PREGABALIN SANDOZ [Concomitant]
     Active Substance: PREGABALIN
     Indication: ANXIETY
     Dosage: 50 MG, QD ; STRENGTH: 25 MILLIGRAMS.
     Route: 048
     Dates: start: 2016
  13. ATORVASTATIN HEXAL [Concomitant]
     Active Substance: ATORVASTATIN
     Indication: HYPERCHOLESTEROLAEMIA
     Dosage: 40 MG, QD ; STRENGTH: 40 MILLIGRAMS.
     Route: 048
     Dates: start: 2014
  14. PANTOPRAZOLE SODIUM. [Concomitant]
     Active Substance: PANTOPRAZOLE SODIUM
     Indication: PROPHYLAXIS AGAINST GASTROINTESTINAL ULCER
     Dosage: 20 MG, QD ; STRENGTH: 20 MILLIGRAMS ; GASTRO-RESISTANT TABLET
     Route: 048
     Dates: start: 20180824

REACTIONS (4)
  - Fistula [Not Recovered/Not Resolved]
  - Osteonecrosis of jaw [Not Recovered/Not Resolved]
  - Abscess jaw [Unknown]
  - Sequestrectomy [Unknown]

NARRATIVE: CASE EVENT DATE: 201806
